FAERS Safety Report 8125129-6 (Version None)
Quarter: 2012Q1

REPORT INFORMATION
  Report Type: 
  Country: None (occurrence: None)
  Receive Date: 20120130
  Receipt Date: 20120119
  Transmission Date: 20120608
  Serious: Yes (Hospitalization, Other)
  Sender: FDA-Public Use
  Company Number: 2011028075

PATIENT
  Age: 55 Year
  Sex: Female
  Weight: 87.9978 kg

DRUGS (28)
  1. SYNTHROID (LEVOTHYROXINE SODIUM) [Concomitant]
  2. HIZENTRA [Suspect]
  3. ALDARA [Concomitant]
  4. PERCOCET [Concomitant]
  5. HIZENTRA [Suspect]
  6. HIZENTRA [Suspect]
  7. PREVACID [Concomitant]
  8. HIZENTRA [Suspect]
  9. HIZENTRA [Suspect]
  10. HIZENTRA [Suspect]
  11. HIZENTRA [Suspect]
  12. HIZENTRA [Suspect]
  13. NORFLEX (ORPHENADRINE CITRATE) [Concomitant]
  14. LYSINE (ACETYLLEUCINE LYSINE) [Concomitant]
  15. ONDANSETRON HCL (ONDANSETRON) [Concomitant]
  16. PRIMIDONE [Concomitant]
  17. HIZENTRA [Suspect]
     Indication: IMMUNODEFICIENCY COMMON VARIABLE
     Dosage: SEE IMAGE
     Route: 058
     Dates: start: 20110504
  18. HIZENTRA [Suspect]
     Indication: IMMUNODEFICIENCY COMMON VARIABLE
     Dosage: SEE IMAGE
     Route: 058
     Dates: start: 20100826
  19. HIZENTRA [Suspect]
     Indication: IMMUNODEFICIENCY COMMON VARIABLE
     Dosage: SEE IMAGE
     Route: 058
     Dates: start: 20110301
  20. HIZENTRA [Suspect]
     Indication: IMMUNODEFICIENCY COMMON VARIABLE
     Dosage: SEE IMAGE
     Route: 058
     Dates: start: 20111006, end: 20111013
  21. HIZENTRA [Suspect]
     Indication: IMMUNODEFICIENCY COMMON VARIABLE
     Dosage: SEE IMAGE
     Route: 058
     Dates: start: 20120112, end: 20120112
  22. HIZENTRA [Suspect]
     Indication: IMMUNODEFICIENCY COMMON VARIABLE
     Dosage: SEE IMAGE
     Route: 058
     Dates: start: 20110701, end: 20110701
  23. HIZENTRA [Suspect]
  24. TRIAZOLAM [Concomitant]
  25. HIZENTRA [Suspect]
  26. ZYRTEC (CETIRIZINE HYDROCHLORIDE) [Concomitant]
  27. ZANTAC [Concomitant]
  28. ORPHENADRINE CITRATE [Concomitant]

REACTIONS (11)
  - COLON NEOPLASM [None]
  - TENDERNESS [None]
  - PAIN [None]
  - EAR INFECTION [None]
  - UPPER RESPIRATORY TRACT INFECTION [None]
  - PHARYNGITIS STREPTOCOCCAL [None]
  - CANDIDIASIS [None]
  - SINUSITIS [None]
  - HAEMORRHOID OPERATION [None]
  - PYREXIA [None]
  - GINGIVAL INFECTION [None]
